FAERS Safety Report 25969905 (Version 2)
Quarter: 2025Q4

REPORT INFORMATION
  Report Type: Spontaneous
  Country: US (occurrence: None)
  Receive Date: 20251028
  Receipt Date: 20251215
  Transmission Date: 20260117
  Serious: Yes (Other)
  Sender: UCB
  Company Number: US-UCBSA-2025040159

PATIENT
  Age: 68 Year
  Weight: 92.17 kg

DRUGS (1)
  1. BIMZELX [Suspect]
     Active Substance: BIMEKIZUMAB-BKZX
     Indication: Psoriatic arthropathy
     Dosage: 160 MILLIGRAM, MONTHLY (QM)

REACTIONS (3)
  - Oesophageal candidiasis [Recovered/Resolved]
  - Feeding disorder [Unknown]
  - Dysphagia [Unknown]
